FAERS Safety Report 10049027 (Version 1)
Quarter: 2014Q1

REPORT INFORMATION
  Report Type: Spontaneous
  Country: US (occurrence: US)
  Receive Date: 20140331
  Receipt Date: 20140331
  Transmission Date: 20141002
  Serious: Yes (Hospitalization, Other)
  Sender: FDA-Public Use
  Company Number: US-RB-065052-14

PATIENT
  Sex: Female

DRUGS (3)
  1. SUBOXONE UNSPECIFIED [Suspect]
     Dosage: VARIOUS DOSAGES, FREQUENTLY INCREASED UP TO 32 MG DAILY; RESTARTED AFTER SURGERY
     Route: 060
  2. SUBOXONE UNSPECIFIED [Suspect]
     Indication: DRUG DEPENDENCE
     Dosage: STARTED THREE WEEKS AFTER HER CARDIAC SURGERY. DOSING DETAILS UNKNOWN.
     Route: 060
  3. SUBOXONE FILM [Suspect]
     Indication: DRUG DEPENDENCE
     Dosage: TAKING 8 MG IN THE MORNING AND 6 MG IN THE AFTERNOON, CUTTING THE FILM TO ACHIEVE DOSING
     Route: 060
     Dates: start: 201401

REACTIONS (5)
  - Arterial occlusive disease [Recovered/Resolved]
  - Anxiety [Not Recovered/Not Resolved]
  - Depression [Recovered/Resolved]
  - Drug withdrawal syndrome [Recovered/Resolved]
  - Wrong technique in drug usage process [Not Recovered/Not Resolved]
